FAERS Safety Report 7331301-5 (Version None)
Quarter: 2011Q1

REPORT INFORMATION
  Report Type: 
  Country: None (occurrence: None)
  Receive Date: 20110228
  Receipt Date: 20110228
  Transmission Date: 20110831
  Serious: Yes (Other)
  Sender: FDA-Public Use
  Company Number: None

PATIENT
  Sex: Female
  Weight: 74.8435 kg

DRUGS (1)
  1. GLYBURIDE [Suspect]
     Dosage: 5MGS ONE Q DAILY ORAL
     Route: 048
     Dates: start: 20060101

REACTIONS (1)
  - RASH GENERALISED [None]
